FAERS Safety Report 5679594-4 (Version None)
Quarter: 2008Q1

REPORT INFORMATION
  Report Type: 
  Country: None (occurrence: None)
  Receive Date: 20080324
  Receipt Date: 20080313
  Transmission Date: 20080703
  Serious: Yes (Death)
  Sender: FDA-Public Use
  Company Number: 20074072

PATIENT
  Age: 87 Year
  Sex: Female

DRUGS (1)
  1. LIORSEAL INTRATHECAL(BACLOFEN INJECTION), 200 MCG/ML [Suspect]
     Indication: MUSCLE SPASTICITY
     Dosage: 100 MCG, DAILY, INTRATHECAL
     Route: 037

REACTIONS (2)
  - DISEASE COMPLICATION [None]
  - PANCREATIC CARCINOMA [None]
